FAERS Safety Report 11009421 (Version 1)
Quarter: 2015Q2

REPORT INFORMATION
  Report Type: Report from Study
  Country: CA (occurrence: CA)
  Receive Date: 20150410
  Receipt Date: 20150410
  Transmission Date: 20150821
  Serious: Yes (Other)
  Sender: FDA-Public Use
  Company Number: CA-JNJFOC-20150404119

PATIENT
  Sex: Male
  Weight: 67 kg

DRUGS (1)
  1. REMICADE [Suspect]
     Active Substance: INFLIXIMAB
     Indication: CROHN^S DISEASE
     Dosage: DOSING FREQUENCY: 0,2,6 AND ONCE IN 8 WEEKS
     Route: 042
     Dates: start: 20141224

REACTIONS (1)
  - Drug-induced liver injury [Not Recovered/Not Resolved]
